FAERS Safety Report 7991056-8 (Version None)
Quarter: 2011Q4

REPORT INFORMATION
  Report Type: 
  Country: None (occurrence: None)
  Receive Date: 20111219
  Receipt Date: 20111213
  Transmission Date: 20120403
  Serious: Yes (Hospitalization, Other)
  Sender: FDA-Public Use
  Company Number: US-ROCHE-793680

PATIENT
  Sex: Female
  Weight: 63.56 kg

DRUGS (2)
  1. ACCUTANE [Suspect]
     Indication: ACNE
     Dates: start: 19971230, end: 19971230
  2. IBUPROFEN [Concomitant]
     Indication: HEADACHE
     Dosage: FREQUENCY: WHEN NEEDED

REACTIONS (4)
  - HEPATIC ENZYME INCREASED [None]
  - INFLAMMATORY BOWEL DISEASE [None]
  - COLITIS ULCERATIVE [None]
  - IRRITABLE BOWEL SYNDROME [None]
